FAERS Safety Report 7776130-3 (Version None)
Quarter: 2011Q3

REPORT INFORMATION
  Report Type: 
  Country: None (occurrence: None)
  Receive Date: 20110925
  Receipt Date: 20110909
  Transmission Date: 20111222
  Serious: Yes (Other)
  Sender: FDA-Public Use
  Company Number: PHHY2011BR80727

PATIENT
  Age: 70 Year
  Sex: Female
  Weight: 49.9 kg

DRUGS (9)
  1. GALVUS [Concomitant]
     Dosage: 50 MG
     Dates: start: 20101130
  2. DIOVAN [Suspect]
     Dosage: 160 MG
     Route: 048
  3. LEVOTHYROXINE SODIUM [Suspect]
     Dosage: 75 UG
  4. ASPIRIN [Concomitant]
     Dosage: 100 MG, UNK
  5. GLIMEPIRIDE [Suspect]
     Dosage: 2 MG, TID
  6. GLIMEPIRIDE [Suspect]
     Dosage: 6 M, BEFORE LUNCH
  7. METFORMIN HCL [Concomitant]
     Dosage: 1000 MG
  8. SIMVASTATIN [Concomitant]
     Dosage: 20 MG, UNK
  9. GALVUS MET [Concomitant]
     Dosage: 500 MG MET AND 50 MG VILDA, TWICE DAILY
     Dates: end: 20101130

REACTIONS (6)
  - BLOOD GLUCOSE INCREASED [None]
  - LOW DENSITY LIPOPROTEIN INCREASED [None]
  - BLOOD TRIGLYCERIDES INCREASED [None]
  - GLYCOSYLATED HAEMOGLOBIN INCREASED [None]
  - MUSCLE ATROPHY [None]
  - WEIGHT DECREASED [None]
